FAERS Safety Report 4277140-3 (Version None)
Quarter: 2004Q1

REPORT INFORMATION
  Report Type: 
  Country: None (occurrence: None)
  Receive Date: 20040120
  Receipt Date: 20040113
  Transmission Date: 20041129
  Serious: Yes (Life-Threatening, Hospitalization, Other)
  Sender: FDA-Public Use
  Company Number: SEWYE467116DEC03

PATIENT
  Sex: Male

DRUGS (1)
  1. EFFEXOR [Suspect]
     Dosage: 225 MG 1 X PER 1 DAY, ORAL
     Route: 048
     Dates: start: 20031001

REACTIONS (5)
  - CENTRAL NERVOUS SYSTEM FUNCTION TEST ABNORMAL [None]
  - DRUG EXPOSURE DURING PREGNANCY [None]
  - MYOCLONUS [None]
  - NEONATAL TACHYPNOEA [None]
  - TREMOR [None]
